FAERS Safety Report 7367924-7 (Version None)
Quarter: 2011Q1

REPORT INFORMATION
  Report Type: 
  Country: None (occurrence: None)
  Receive Date: 20110322
  Receipt Date: 20110318
  Transmission Date: 20110831
  Serious: Yes (Death, Life-Threatening, Hospitalization)
  Sender: FDA-Public Use
  Company Number: PHHO2010CN18273

PATIENT
  Sex: Male
  Weight: 68 kg

DRUGS (1)
  1. EVEROLIMUS [Suspect]
     Indication: METASTATIC RENAL CELL CARCINOMA
     Dosage: 10 MG, DAILY
     Route: 048
     Dates: start: 20100903, end: 20100914

REACTIONS (10)
  - CIRCULATORY COLLAPSE [None]
  - PYREXIA [None]
  - PRODUCTIVE COUGH [None]
  - PULMONARY FIBROSIS [None]
  - ALPHA HAEMOLYTIC STREPTOCOCCAL INFECTION [None]
  - CONCOMITANT DISEASE PROGRESSION [None]
  - DYSPNOEA [None]
  - NEOPLASM MALIGNANT [None]
  - LUNG INFECTION [None]
  - CHEST PAIN [None]
